FAERS Safety Report 20240912 (Version 1)
Quarter: 2021Q4

REPORT INFORMATION
  Report Type: Spontaneous
  Country: US (occurrence: US)
  Receive Date: 20211228
  Receipt Date: 20211228
  Transmission Date: 20220303
  Serious: Yes (Other)
  Sender: FDA-Public Use
  Company Number: US-PURDUE-USA-2020-0223384

PATIENT
  Sex: Female

DRUGS (6)
  1. OXYCONTIN [Suspect]
     Active Substance: OXYCODONE HYDROCHLORIDE
     Indication: Accident
     Dosage: 60 MG, UNK
     Route: 048
     Dates: start: 20130809
  2. OXYCODONE HYDROCHLORIDE [Suspect]
     Active Substance: OXYCODONE HYDROCHLORIDE
     Indication: Accident
     Dosage: 20 MG, UNK
     Route: 048
     Dates: start: 20130809
  3. OXYCODONE HYDROCHLORIDE [Suspect]
     Active Substance: OXYCODONE HYDROCHLORIDE
     Dosage: 10 UNK, UNK
     Route: 048
  4. MS CONTIN [Suspect]
     Active Substance: MORPHINE SULFATE
     Indication: Accident
     Dosage: UNKNOWN
     Route: 048
     Dates: start: 20130809
  5. MORPHINE SULFATE [Suspect]
     Active Substance: MORPHINE SULFATE
     Indication: Accident
     Dosage: 15 MG, UNK
     Route: 048
     Dates: start: 20130809
  6. ACETAMINOPHEN\OXYCODONE HYDROCHLORIDE [Suspect]
     Active Substance: ACETAMINOPHEN\OXYCODONE HYDROCHLORIDE
     Indication: Accident
     Dosage: 10-325 MG
     Route: 048
     Dates: start: 20130809

REACTIONS (5)
  - Drug dependence [Unknown]
  - Constipation [Unknown]
  - Nausea [Unknown]
  - Balance disorder [Unknown]
  - Pain [Unknown]
